FAERS Safety Report 8226443-6 (Version None)
Quarter: 2012Q1

REPORT INFORMATION
  Report Type: 
  Country: None (occurrence: None)
  Receive Date: 20120321
  Receipt Date: 20120313
  Transmission Date: 20120608
  Serious: Yes (Other)
  Sender: FDA-Public Use
  Company Number: AU-ASTRAZENECA-2012SE12949

PATIENT
  Age: 38 Year
  Sex: Female

DRUGS (4)
  1. SEROQUEL [Suspect]
     Indication: SLEEP DISORDER
     Route: 048
     Dates: start: 20120222, end: 20120223
  2. METFORMIN HCL [Concomitant]
  3. CLOMID [Concomitant]
  4. SERTRALINE HYDROCHLORIDE [Concomitant]
     Indication: DEPRESSION
     Route: 048
     Dates: start: 20110928

REACTIONS (3)
  - ANXIETY [None]
  - HEART RATE INCREASED [None]
  - DRUG PRESCRIBING ERROR [None]
